FAERS Safety Report 9190527 (Version 4)
Quarter: 2014Q2

REPORT INFORMATION
  Report Type: Report from Study
  Country: SK (occurrence: SK)
  Receive Date: 20130326
  Receipt Date: 20140425
  Transmission Date: 20141212
  Serious: Yes (Death)
  Sender: FDA-Public Use
  Company Number: SK-UCBSA-081220

PATIENT
  Age: 87 Year
  Sex: Female
  Weight: 68 kg

DRUGS (10)
  1. NEUPRO [Suspect]
     Indication: PARKINSON^S DISEASE
     Route: 062
     Dates: start: 20110617, end: 2012
  2. NEUPRO [Suspect]
     Indication: PARKINSON^S DISEASE
     Route: 062
     Dates: start: 20110609, end: 20110616
  3. NEUPRO [Suspect]
     Indication: PARKINSON^S DISEASE
     Route: 062
     Dates: start: 20110602, end: 20110608
  4. MADOPAR [Concomitant]
     Indication: PARKINSON^S DISEASE
     Dates: start: 20110602, end: 2012
  5. MADOPAR [Concomitant]
     Indication: PARKINSON^S DISEASE
     Dates: start: 20110503, end: 20110601
  6. MADOPAR [Concomitant]
     Indication: PARKINSON^S DISEASE
     Dates: start: 20110411, end: 20110502
  7. COSTI [Concomitant]
     Indication: DYSPEPSIA
     Dates: start: 20110411, end: 2012
  8. CITALOPRAM [Concomitant]
     Indication: DEPRESSION
     Dates: start: 20110329, end: 2012
  9. RIVOTRIL [Concomitant]
     Indication: INSOMNIA
     Dosage: 0.5 MG, OTHER 1/2 TABLET TWICE DAILY
     Dates: start: 20110329, end: 2012
  10. AMILOSTAD [Concomitant]
     Indication: HYPERTENSION
     Dates: start: 201105, end: 2012

REACTIONS (1)
  - Death [Fatal]
